FAERS Safety Report 8908234 (Version 1)
Quarter: 2012Q4

REPORT INFORMATION
  Report Type: 
  Country: US (occurrence: US)
  Receive Date: 20121113
  Receipt Date: 20121113
  Transmission Date: 20130627
  Serious: No
  Sender: FDA-Public Use
  Company Number: US-AMGEN-USASP2012038036

PATIENT
  Age: 73 Year
  Sex: Female
  Weight: 72 kg

DRUGS (6)
  1. ARANESP [Suspect]
     Indication: RENAL FAILURE CHRONIC
     Dosage: 200 mug, qwk
     Route: 058
     Dates: start: 20110503
  2. WARFARIN [Concomitant]
     Indication: ATRIAL FIBRILLATION
     Dosage: 4 mg, qd (PM)
     Route: 048
  3. ALLOPURINOL [Concomitant]
     Indication: HYPERURICAEMIA
     Dosage: 100 mg, qd
     Route: 048
  4. FERROUS GLUCONATE [Concomitant]
     Indication: ANAEMIA
     Dosage: 97 mg, qd
     Route: 048
  5. PAROXETINE [Concomitant]
     Dosage: 20 mg, qhs
     Route: 048
  6. SIMVASTATIN [Concomitant]
     Indication: LIPIDS ABNORMAL
     Dosage: 20 mg, qd (PM)
     Route: 048

REACTIONS (1)
  - Therapeutic response decreased [Not Recovered/Not Resolved]
